FAERS Safety Report 21371031 (Version 4)
Quarter: 2022Q4

REPORT INFORMATION
  Report Type: Spontaneous
  Country: CA (occurrence: CA)
  Receive Date: 20220923
  Receipt Date: 20221117
  Transmission Date: 20230112
  Serious: Yes (Other)
  Sender: FDA-Public Use
  Company Number: CA-PFIZER INC-PV202200068166

PATIENT
  Age: 50 Year
  Sex: Male

DRUGS (2)
  1. INLYTA [Suspect]
     Active Substance: AXITINIB
     Dosage: UNK
     Dates: start: 20220821, end: 20221110
  2. SENSODYNE [SODIUM FLUORIDE] [Concomitant]
     Dosage: UNK

REACTIONS (4)
  - Neuropathy peripheral [Unknown]
  - Hyperaesthesia teeth [Unknown]
  - Hyperaesthesia [Unknown]
  - Toothache [Unknown]
